FAERS Safety Report 21513699 (Version 1)
Quarter: 2022Q4

REPORT INFORMATION
  Report Type: Spontaneous
  Country: IT (occurrence: IT)
  Receive Date: 20221027
  Receipt Date: 20221027
  Transmission Date: 20230112
  Serious: Yes (Hospitalization)
  Sender: FDA-Public Use
  Company Number: None

PATIENT
  Age: 40 Year
  Sex: Female
  Weight: 60 kg

DRUGS (2)
  1. IBUPROFEN [Suspect]
     Active Substance: IBUPROFEN
     Indication: Pain
     Dosage: 1200 MILLIGRAM DAILY; 600MGX 2 TIMES / DAY, THERAPY DURATION : 4 DAYS
     Route: 065
     Dates: start: 20220922, end: 20220926
  2. ENOXAPARIN [Concomitant]
     Active Substance: ENOXAPARIN
     Indication: Embolism
     Dosage: 4000 IU (INTERNATIONAL UNIT) DAILY; THERAPY DURATION : 17  DAYS
     Dates: start: 20220917, end: 20221004

REACTIONS (1)
  - Liver disorder [Not Recovered/Not Resolved]

NARRATIVE: CASE EVENT DATE: 20220922
